FAERS Safety Report 4698208-3 (Version None)
Quarter: 2005Q2

REPORT INFORMATION
  Report Type: 
  Country: None (occurrence: None)
  Receive Date: 20050623
  Receipt Date: 20050620
  Transmission Date: 20051028
  Serious: Yes (Other)
  Sender: FDA-Public Use
  Company Number: US-JNJFOC-20050203719

PATIENT
  Sex: Female

DRUGS (4)
  1. EXTRA STRENGTH TYLENOL [Suspect]
     Indication: BACK PAIN
     Route: 049
  2. EXTRA STRENGTH TYLENOL [Suspect]
     Route: 049
  3. HYDROCODONE BITARTRATE [Concomitant]
     Dosage: ^A SWIG^
  4. COUMADIN [Concomitant]

REACTIONS (4)
  - HAEMATURIA [None]
  - HEADACHE [None]
  - OVERDOSE [None]
  - THROMBOSIS [None]
